FAERS Safety Report 12037344 (Version 1)
Quarter: 2016Q1

REPORT INFORMATION
  Report Type: Report from Study
  Country: US (occurrence: US)
  Receive Date: 20160208
  Receipt Date: 20160208
  Transmission Date: 20160526
  Serious: Yes (Death, Hospitalization)
  Sender: FDA-Public Use
  Company Number: US-ROCHE-420825

PATIENT
  Age: 40 Year
  Sex: Male
  Weight: 105 kg

DRUGS (3)
  1. ERLOTINIB [Suspect]
     Active Substance: ERLOTINIB
     Indication: ADENOCARCINOMA PANCREAS
     Dosage: ADMINISTERED ON DAYS 1 TO 5, 8 TO 12 AND 15 TO 26 OF THE CYCLE.
     Route: 048
     Dates: start: 20050426, end: 20050923
  2. GEMCITABINE [Suspect]
     Active Substance: GEMCITABINE\GEMCITABINE HYDROCHLORIDE
     Indication: ADENOCARCINOMA PANCREAS
     Dosage: ADMINISTERED ON DAYS 1,8 AND 15 OF CYCLE?OVER 30 MINUTES ON DAYS 1,8 AND 15
     Route: 042
     Dates: start: 20050426, end: 20050920
  3. BEVACIZUMAB [Suspect]
     Active Substance: BEVACIZUMAB
     Indication: ADENOCARCINOMA PANCREAS
     Dosage: ADMINISTERED ON DAYS 1 AND 15 OF THE CYCLE.?OVER 60 TO 90 MIN ON DAYS 1 AND 15
     Route: 042
     Dates: start: 20050426, end: 20050823

REACTIONS (5)
  - Dyspnoea [Not Recovered/Not Resolved]
  - Disease progression [Fatal]
  - Pulmonary embolism [Not Recovered/Not Resolved]
  - Blood bilirubin increased [Not Recovered/Not Resolved]
  - Hepatic function abnormal [Not Recovered/Not Resolved]

NARRATIVE: CASE EVENT DATE: 20050923
